FAERS Safety Report 17283491 (Version 2)
Quarter: 2020Q1

REPORT INFORMATION
  Report Type: Spontaneous
  Country: JP (occurrence: JP)
  Receive Date: 20200117
  Receipt Date: 20200227
  Transmission Date: 20200409
  Serious: No
  Sender: FDA-Public Use
  Company Number: JP-JNJFOC-20200119422

PATIENT
  Age: 9 Decade
  Sex: Male

DRUGS (1)
  1. ITRIZOLE [Suspect]
     Active Substance: ITRACONAZOLE
     Indication: OESOPHAGEAL CANDIDIASIS
     Dosage: 10MG/ML
     Route: 048

REACTIONS (2)
  - Product complaint [Unknown]
  - Choking sensation [Unknown]
